FAERS Safety Report 8797590 (Version 2)
Quarter: 2015Q1

REPORT INFORMATION
  Report Type: Report from Study
  Country: US (occurrence: US)
  Receive Date: 20120919
  Receipt Date: 20150325
  Transmission Date: 20150721
  Serious: Yes (Death)
  Sender: FDA-Public Use
  Company Number: US-ROCHE-1123680

PATIENT
  Age: 58 Year
  Sex: Female

DRUGS (19)
  1. AVASTIN [Suspect]
     Active Substance: BEVACIZUMAB
     Indication: LUNG NEOPLASM MALIGNANT
     Route: 042
     Dates: start: 20060126
  2. AMITRIPTYLIN [Concomitant]
     Active Substance: AMITRIPTYLINE
  3. DICLOFENAC [Concomitant]
     Active Substance: DICLOFENAC
  4. AVASTIN [Suspect]
     Active Substance: BEVACIZUMAB
     Route: 042
  5. LIPITOR [Concomitant]
     Active Substance: ATORVASTATIN CALCIUM
  6. ADVAIR HFA [Concomitant]
     Active Substance: FLUTICASONE PROPIONATE\SALMETEROL XINAFOATE
  7. WELLBUTRIN [Concomitant]
     Active Substance: BUPROPION HYDROCHLORIDE
  8. ARANESP [Concomitant]
     Active Substance: DARBEPOETIN ALFA
     Route: 065
  9. TAXOTERE [Concomitant]
     Active Substance: DOCETAXEL
     Route: 065
  10. ALIMTA [Concomitant]
     Active Substance: PEMETREXED DISODIUM
     Route: 065
  11. AVASTIN [Suspect]
     Active Substance: BEVACIZUMAB
     Indication: METASTASES TO LYMPH NODES
     Route: 042
  12. AVASTIN [Suspect]
     Active Substance: BEVACIZUMAB
     Route: 042
  13. TRAZODONE [Concomitant]
     Active Substance: TRAZODONE HYDROCHLORIDE
  14. NEXIUM [Concomitant]
     Active Substance: ESOMEPRAZOLE MAGNESIUM
  15. CARBOPLATIN. [Concomitant]
     Active Substance: CARBOPLATIN
  16. DECADRON [Concomitant]
     Active Substance: DEXAMETHASONE
     Route: 065
  17. KYTRIL [Concomitant]
     Active Substance: GRANISETRON HYDROCHLORIDE
     Route: 065
  18. ASPIRIN. [Concomitant]
     Active Substance: ASPIRIN
  19. EVISTA [Concomitant]
     Active Substance: RALOXIFENE HYDROCHLORIDE

REACTIONS (15)
  - Oropharyngeal pain [Recovered/Resolved]
  - Fatigue [Unknown]
  - Mucosal inflammation [Recovered/Resolved]
  - Respiratory tract infection [Recovered/Resolved]
  - Nausea [Recovered/Resolved]
  - Dyspnoea [Unknown]
  - Off label use [Unknown]
  - Pharyngitis [Recovered/Resolved]
  - Glossodynia [Recovered/Resolved]
  - Cough [Unknown]
  - Death [Fatal]
  - Disease progression [Unknown]
  - Asthenia [Unknown]
  - Weight decreased [Unknown]
  - Blood pressure increased [Unknown]

NARRATIVE: CASE EVENT DATE: 20060422
